FAERS Safety Report 10647765 (Version 1)
Quarter: 2014Q4

REPORT INFORMATION
  Report Type: Spontaneous
  Country: US (occurrence: US)
  Receive Date: 20141212
  Receipt Date: 20141212
  Transmission Date: 20150529
  Serious: No
  Sender: FDA-Public Use
  Company Number: US-009507513-1412USA006120

PATIENT
  Age: 23 Year
  Sex: Female

DRUGS (6)
  1. LOPINAVIR (+) RITONAVIR [Suspect]
     Active Substance: LOPINAVIR\RITONAVIR
     Dosage: DAILY DOSE 6
     Route: 048
  2. ZIDOVUDINE. [Suspect]
     Active Substance: ZIDOVUDINE
     Dosage: DAILY DOSE 1
     Route: 042
  3. LAMIVUDINE AND ZIDOVUDINE [Suspect]
     Active Substance: LAMIVUDINE\ZIDOVUDINE
     Dosage: DAILY DOSE 2
     Route: 048
  4. ISENTRESS [Suspect]
     Active Substance: RALTEGRAVIR POTASSIUM
     Dosage: DAILY DOSE: 800
     Route: 048
  5. NEVIRAPINE. [Suspect]
     Active Substance: NEVIRAPINE
     Dosage: DAILY DOSE 400
     Route: 048
  6. ZIDOVUDINE. [Suspect]
     Active Substance: ZIDOVUDINE
     Dosage: DAILY DOSE 2
     Route: 042

REACTIONS (1)
  - Exposure during pregnancy [Recovered/Resolved]
